FAERS Safety Report 10050087 (Version 1)
Quarter: 2014Q1

REPORT INFORMATION
  Report Type: Spontaneous
  Country: US (occurrence: None)
  Receive Date: 20140331
  Receipt Date: 20140331
  Transmission Date: 20141002
  Serious: Yes (Other)
  Sender: FDA-Public Use
  Company Number: None

PATIENT
  Age: 42 Year
  Sex: Female
  Weight: 77.11 kg

DRUGS (1)
  1. SELENIUM SULFIDE [Suspect]
     Indication: SEBORRHOEIC DERMATITIS
     Dosage: TWICE A WEEK, AS NEEDED, APPLIED TO A SURFACE, USUALLY THE SKIN
     Dates: start: 20131115, end: 20140319

REACTIONS (3)
  - Thermal burn [None]
  - Alopecia [None]
  - Burning sensation [None]
